FAERS Safety Report 4404189-X (Version None)
Quarter: 2004Q3

REPORT INFORMATION
  Report Type: 
  Country: None (occurrence: None)
  Receive Date: 20040721
  Receipt Date: 20040721
  Transmission Date: 20050211
  Serious: No
  Sender: FDA-Public Use
  Company Number: None

PATIENT
  Age: 72 Year
  Sex: Male
  Weight: 74.5 kg

DRUGS (17)
  1. AMPICILLIN SODIUM/SULBACTAM SODIUM [Suspect]
     Indication: GANGRENE
     Dosage: 1.5 GM IV
     Route: 042
     Dates: start: 20040206, end: 20040302
  2. OMEPRAZOLE [Concomitant]
  3. PHYTONADIONE [Concomitant]
  4. METOPROLOL TARTRATE (IMMEDIATE RELEASE) [Concomitant]
  5. MINERAL OIL /PETROLATUM [Concomitant]
  6. ERYTHROMCYIN [Concomitant]
  7. DORZOLAMIDE/TIMOLOL [Concomitant]
  8. BRIMONIDINE-P [Concomitant]
  9. CLOPIDOGREL [Concomitant]
  10. HEPARIN [Concomitant]
  11. POLYVINYL ALCOHOL /POVIDINE/SOD CHLORIDE [Concomitant]
  12. ALBUTERL MDI INH [Concomitant]
  13. DEXTROSE [Concomitant]
  14. INSULIN REG HIMAN [Concomitant]
  15. DOCUSATE SOD [Concomitant]
  16. ONDANSETRON [Concomitant]
  17. METRONIDAZOLE [Concomitant]

REACTIONS (1)
  - CLOSTRIDIAL INFECTION [None]
